FAERS Safety Report 11707926 (Version 1)
Quarter: 2015Q4

REPORT INFORMATION
  Report Type: Spontaneous
  Country: US (occurrence: US)
  Receive Date: 20151104
  Receipt Date: 20151104
  Transmission Date: 20160304
  Serious: No
  Sender: FDA-Public Use
  Company Number: US-ELI_LILLY_AND_COMPANY-US201108003468

PATIENT
  Age: 82 Year
  Sex: Female

DRUGS (1)
  1. FORTEO [Suspect]
     Active Substance: TERIPARATIDE
     Indication: OSTEOPOROSIS
     Dosage: UNK, QD
     Dates: start: 20110701, end: 20110715

REACTIONS (6)
  - Arthralgia [Unknown]
  - Headache [Unknown]
  - Intentional product misuse [Unknown]
  - Back pain [Unknown]
  - Joint swelling [Unknown]
  - Ear pain [Unknown]
